FAERS Safety Report 10489691 (Version 3)
Quarter: 2015Q4

REPORT INFORMATION
  Report Type: Report from Study
  Country: GB (occurrence: GB)
  Receive Date: 20141002
  Receipt Date: 20151215
  Transmission Date: 20160304
  Serious: Yes (Hospitalization, Other)
  Sender: FDA-Public Use
  Company Number: PHHY2014GB128617

PATIENT
  Age: 33 Year
  Sex: Male
  Weight: 72.9 kg

DRUGS (1)
  1. SOMATROPIN [Suspect]
     Active Substance: SOMATROPIN
     Indication: GROWTH HORMONE DEFICIENCY
     Dosage: 0.4 MG, QD
     Route: 065
     Dates: start: 20090401

REACTIONS (5)
  - Left ventricular failure [Recovering/Resolving]
  - Papule [Recovering/Resolving]
  - Pulmonary oedema [Recovering/Resolving]
  - Basal cell carcinoma [Recovering/Resolving]
  - Pneumonia [Recovered/Resolved]

NARRATIVE: CASE EVENT DATE: 200906
